FAERS Safety Report 7385209-X (Version None)
Quarter: 2011Q1

REPORT INFORMATION
  Report Type: 
  Country: None (occurrence: None)
  Receive Date: 20110330
  Receipt Date: 20110131
  Transmission Date: 20110831
  Serious: No
  Sender: FDA-Public Use
  Company Number: US-MYLANLABS-2011S1002247

PATIENT
  Age: 54 Year
  Sex: Female

DRUGS (4)
  1. LASIX [Concomitant]
     Indication: BLOOD PRESSURE INCREASED
     Route: 048
  2. POTASSIUM [Concomitant]
     Route: 048
  3. NEXIUM [Concomitant]
     Route: 048
  4. NIFEDIPINE [Suspect]
     Indication: BLOOD PRESSURE INCREASED
     Route: 048
     Dates: start: 20100101

REACTIONS (1)
  - HEADACHE [None]
